FAERS Safety Report 17105819 (Version 1)
Quarter: 2019Q4

REPORT INFORMATION
  Report Type: Spontaneous
  Country: US (occurrence: US)
  Receive Date: 20191203
  Receipt Date: 20191203
  Transmission Date: 20200122
  Serious: Yes (Other)
  Sender: FDA-Public Use
  Company Number: US-PFIZER INC-2019516124

PATIENT
  Age: 63 Year
  Sex: Female
  Weight: 49.34 kg

DRUGS (1)
  1. CELECOXIB. [Suspect]
     Active Substance: CELECOXIB
     Indication: TENDONITIS
     Dosage: 200 MG, 1X/DAY
     Route: 048
     Dates: start: 20191126

REACTIONS (5)
  - Limb injury [Unknown]
  - Musculoskeletal pain [Unknown]
  - Cerebrospinal fluid leakage [Unknown]
  - Fall [Unknown]
  - Hypoaesthesia [Not Recovered/Not Resolved]

NARRATIVE: CASE EVENT DATE: 20191126
